FAERS Safety Report 8249238-6 (Version None)
Quarter: 2012Q1

REPORT INFORMATION
  Report Type: 
  Country: None (occurrence: None)
  Receive Date: 20120327
  Receipt Date: 20120317
  Transmission Date: 20120608
  Serious: Yes (Hospitalization, Disabling, Other)
  Sender: FDA-Public Use
  Company Number: ACO_29764_2012

PATIENT
  Age: 55 Year
  Sex: Male
  Weight: 79.4 kg

DRUGS (4)
  1. BACLOFEN [Concomitant]
  2. TRAMADOL HCL [Concomitant]
     Indication: PRODUCT USED FOR UNKNOWN INDICATION
     Dates: end: 20120215
  3. AMANTADINE HCL [Concomitant]
  4. AMPYRA [Suspect]
     Indication: GAIT DISTURBANCE
     Dosage: 10 MG, BID, ORAL
     Route: 048
     Dates: start: 20100101, end: 20120215

REACTIONS (7)
  - LOSS OF CONSCIOUSNESS [None]
  - CONSTIPATION [None]
  - ASTHENIA [None]
  - CONVULSION [None]
  - ABASIA [None]
  - PRESYNCOPE [None]
  - MULTIPLE SCLEROSIS [None]
